FAERS Safety Report 8965710 (Version 4)
Quarter: 2014Q4

REPORT INFORMATION
  Report Type: Spontaneous
  Country: US (occurrence: None)
  Receive Date: 20121206
  Receipt Date: 20141027
  Transmission Date: 20150529
  Serious: Yes (Death)
  Sender: FDA-Public Use
  Company Number: JPI-P-026499

PATIENT
  Age: 59 Year
  Sex: Male

DRUGS (10)
  1. OMEPRAZOLE. [Concomitant]
     Active Substance: OMEPRAZOLE
  2. VITAMIN B [Concomitant]
     Active Substance: VITAMIN B
  3. CALCIUM [Concomitant]
     Active Substance: CALCIUM
  4. XYREM [Suspect]
     Active Substance: SODIUM OXYBATE
     Indication: NARCOLEPSY
     Dosage: 4.5 GM (2.25 GM, 2 IN 1 D), ORAL
     Route: 048
     Dates: start: 20030327
  5. DEXTROAMPHETAMINE [Concomitant]
     Active Substance: DEXTROAMPHETAMINE
  6. XYREM [Suspect]
     Active Substance: SODIUM OXYBATE
     Indication: SOMNOLENCE
     Dosage: 4.5 GM (2.25 GM, 2 IN 1 D), ORAL
     Route: 048
     Dates: start: 20030327
  7. XYREM [Suspect]
     Active Substance: SODIUM OXYBATE
     Indication: INSOMNIA
     Dosage: 4.5 GM (2.25 GM, 2 IN 1 D), ORAL
     Route: 048
     Dates: start: 20030327
  8. MULTIVITAMINS [Concomitant]
     Active Substance: VITAMINS
  9. BUPROPION [Concomitant]
     Active Substance: BUPROPION
  10. CEVIMELINE HYDROCHLORIDE. [Concomitant]
     Active Substance: CEVIMELINE HYDROCHLORIDE

REACTIONS (6)
  - Weight decreased [None]
  - Lung squamous cell carcinoma stage IV [None]
  - Incorrect dose administered [None]
  - Poor quality sleep [None]
  - Intentional product misuse [None]
  - Initial insomnia [None]

NARRATIVE: CASE EVENT DATE: 2012
